FAERS Safety Report 8323734 (Version 3)
Quarter: 2012Q4

REPORT INFORMATION
  Report Type: 
  Country: US (occurrence: US)
  Receive Date: 20120105
  Receipt Date: 20120911
  Transmission Date: 20130627
  Serious: Yes (Hospitalization)
  Sender: FDA-Public Use
  Company Number: US-GILEAD-2012-0048718

PATIENT
  Sex: Male

DRUGS (2)
  1. LETAIRIS [Suspect]
     Indication: PULMONARY HYPERTENSION
     Dosage: 10 mg, UNK
     Route: 048
     Dates: start: 20100226
  2. LETAIRIS [Suspect]
     Indication: HIV INFECTION

REACTIONS (3)
  - Colostomy [Unknown]
  - Gastric disorder [Unknown]
  - Gastrointestinal pain [Unknown]
